FAERS Safety Report 7787112-X (Version None)
Quarter: 2011Q3

REPORT INFORMATION
  Report Type: 
  Country: None (occurrence: None)
  Receive Date: 20110929
  Receipt Date: 20110920
  Transmission Date: 20111222
  Serious: Yes (Other)
  Sender: FDA-Public Use
  Company Number: FR-ABBOTT-11P-056-0856937-00

PATIENT
  Age: 55 Year
  Sex: Female

DRUGS (2)
  1. CISATRACURIUM BESYLATE [Suspect]
     Indication: PRODUCT USED FOR UNKNOWN INDICATION
  2. EPINEPHRINE [Concomitant]
     Indication: PRODUCT USED FOR UNKNOWN INDICATION

REACTIONS (3)
  - CARDIOGENIC SHOCK [None]
  - ANAPHYLACTOID SHOCK [None]
  - STRESS CARDIOMYOPATHY [None]
